FAERS Safety Report 15153077 (Version 2)
Quarter: 2018Q3

REPORT INFORMATION
  Report Type: Spontaneous
  Country: US (occurrence: US)
  Receive Date: 20180717
  Receipt Date: 20180814
  Transmission Date: 20181010
  Serious: No
  Sender: FDA-Public Use
  Company Number: US-PFIZER INC-2018262988

PATIENT
  Sex: Male

DRUGS (1)
  1. ADVIL [Suspect]
     Active Substance: IBUPROFEN
     Dosage: UNK (80 CT W/FREE 20 COUNT)

REACTIONS (3)
  - Poor quality drug administered [Unknown]
  - Dizziness [Unknown]
  - Product commingling [Unknown]
